FAERS Safety Report 23250208 (Version 1)
Quarter: 2023Q4

REPORT INFORMATION
  Report Type: Report from Study
  Country: US (occurrence: US)
  Receive Date: 20231201
  Receipt Date: 20231201
  Transmission Date: 20240110
  Serious: Yes (Other)
  Sender: FDA-Public Use
  Company Number: US-002147023-NVSC2023US253410

PATIENT
  Sex: Female

DRUGS (1)
  1. ENTRESTO [Suspect]
     Active Substance: SACUBITRIL\VALSARTAN
     Indication: Cardiac failure
     Dosage: 24 MG, BID (24/26MG, PHARMACY BOTTLE)
     Route: 048
     Dates: start: 20231117

REACTIONS (2)
  - Arrhythmia [Unknown]
  - Hypotension [Unknown]
